FAERS Safety Report 15785900 (Version 1)
Quarter: 2019Q1

REPORT INFORMATION
  Report Type: Spontaneous
  Country: US (occurrence: US)
  Receive Date: 20190102
  Receipt Date: 20190102
  Transmission Date: 20190417
  Serious: Yes (Hospitalization, Disabling)
  Sender: FDA-Public Use
  Company Number: None

PATIENT
  Age: 48 Year
  Sex: Female
  Weight: 80.1 kg

DRUGS (11)
  1. ZETIA [Concomitant]
     Active Substance: EZETIMIBE
  2. AMLODIPINE [Suspect]
     Active Substance: AMLODIPINE BESYLATE
  3. LONITEN [Concomitant]
     Active Substance: MINOXIDIL
  4. GABAPENTIN. [Concomitant]
     Active Substance: GABAPENTIN
  5. PLAVIX [Concomitant]
     Active Substance: CLOPIDOGREL BISULFATE
  6. AMITRIPTYLINE [Suspect]
     Active Substance: AMITRIPTYLINE
     Dates: start: 20180701, end: 20181107
  7. CARVEDILOL. [Suspect]
     Active Substance: CARVEDILOL
  8. IMDUR [Concomitant]
     Active Substance: ISOSORBIDE MONONITRATE
  9. METFORMIN [Concomitant]
     Active Substance: METFORMIN HYDROCHLORIDE
  10. ATORVASTATIN [Suspect]
     Active Substance: ATORVASTATIN
  11. LISINOPRIL. [Concomitant]
     Active Substance: LISINOPRIL

REACTIONS (2)
  - Dyspnoea [None]
  - Swelling face [None]

NARRATIVE: CASE EVENT DATE: 20180701
